FAERS Safety Report 24193268 (Version 1)
Quarter: 2024Q3

REPORT INFORMATION
  Report Type: Report from Study
  Country: CA (occurrence: CA)
  Receive Date: 20240809
  Receipt Date: 20240809
  Transmission Date: 20241017
  Serious: Yes (Death, Other)
  Sender: GLAXOSMITHKLINE
  Company Number: CA-GLAXOSMITHKLINE-CA2024024277

PATIENT

DRUGS (1)
  1. MEPOLIZUMAB [Suspect]
     Active Substance: MEPOLIZUMAB
     Indication: Asthma
     Dosage: 100 MG, Q4W
     Route: 058
     Dates: start: 20240223

REACTIONS (8)
  - Death [Fatal]
  - Oxygen saturation abnormal [Unknown]
  - Blood pressure decreased [Unknown]
  - Muscular weakness [Unknown]
  - Dizziness [Unknown]
  - Decreased appetite [Unknown]
  - Injection site haemorrhage [Unknown]
  - Wheezing [Unknown]
